FAERS Safety Report 12202490 (Version 1)
Quarter: 2016Q1

REPORT INFORMATION
  Report Type: Report from Study
  Country: GB (occurrence: GB)
  Receive Date: 20160322
  Receipt Date: 20160322
  Transmission Date: 20160526
  Serious: Yes (Disabling)
  Sender: FDA-Public Use
  Company Number: GB-CELGENE-167-20785-13094461

PATIENT
  Age: 48 Year
  Sex: Male

DRUGS (3)
  1. VORINOSTAT [Concomitant]
     Active Substance: VORINOSTAT
     Indication: PLASMA CELL MYELOMA
     Route: 048
     Dates: end: 20130708
  2. REVLIMID [Suspect]
     Active Substance: LENALIDOMIDE
     Indication: MYELODYSPLASTIC SYNDROME
     Route: 048
     Dates: end: 20130708
  3. THALIDOMIDE CELGENE [Suspect]
     Active Substance: THALIDOMIDE
     Indication: PLASMA CELL MYELOMA
     Route: 048

REACTIONS (1)
  - Adverse drug reaction [Recovered/Resolved]

NARRATIVE: CASE EVENT DATE: 20130429
